FAERS Safety Report 17294675 (Version 1)
Quarter: 2020Q1

REPORT INFORMATION
  Report Type: Spontaneous
  Country: US (occurrence: US)
  Receive Date: 20200121
  Receipt Date: 20200121
  Transmission Date: 20200409
  Serious: No
  Sender: FDA-Public Use
  Company Number: US-PFIZER INC-2020023654

PATIENT
  Age: 47 Year
  Sex: Female

DRUGS (4)
  1. ALDACTONE [Suspect]
     Active Substance: SPIRONOLACTONE
     Indication: MENOPAUSAL SYMPTOMS
     Dosage: 50 MG, 2X/DAY [TAKE TWO TABLET BY MOUTH TWICE A DAY]
     Route: 048
  2. ROBAXIN [Suspect]
     Active Substance: METHOCARBAMOL
     Indication: HIRSUTISM
  3. ROBAXIN [Suspect]
     Active Substance: METHOCARBAMOL
     Indication: MENOPAUSAL SYMPTOMS
     Dosage: 1000 MG, AS NEEDED [TAKE TWO TABLET (1000 MG DOSE) BY MOUTH 3 TIMES A DAY AS NEEDED]
     Route: 048
  4. ALDACTONE [Suspect]
     Active Substance: SPIRONOLACTONE
     Indication: HIRSUTISM

REACTIONS (3)
  - Scar [Unknown]
  - Off label use [Unknown]
  - Product use in unapproved indication [Unknown]
